FAERS Safety Report 9334050 (Version 1)
Quarter: 2013Q2

REPORT INFORMATION
  Report Type: Spontaneous
  Country: US (occurrence: US)
  Receive Date: 20130606
  Receipt Date: 20130606
  Transmission Date: 20140414
  Serious: No
  Sender: FDA-Public Use
  Company Number: US-AMGEN-USASP2013015337

PATIENT
  Age: 86 Year
  Sex: Female

DRUGS (16)
  1. PROLIA [Suspect]
     Indication: OSTEOPOROSIS POSTMENOPAUSAL
     Dosage: UNK
     Dates: start: 20121228
  2. PRADAXA [Concomitant]
  3. CRESTOR [Concomitant]
  4. FENOFIBRATE [Concomitant]
  5. HYZAAR [Concomitant]
  6. SPIRONOLACTONE [Concomitant]
  7. TOPROL [Concomitant]
  8. METOPROLOL [Concomitant]
  9. NEXIUM                             /01479302/ [Concomitant]
  10. KLOR-CON [Concomitant]
  11. CALCIUM [Concomitant]
  12. FISH OIL [Concomitant]
  13. FLAXSEED OIL [Concomitant]
  14. CENTRUM                            /02217401/ [Concomitant]
  15. APPLE CIDER VINEGAR PLUS BROMELAIN AN. [Concomitant]
  16. THYROID [Concomitant]

REACTIONS (2)
  - Tooth disorder [Unknown]
  - Tooth fracture [Unknown]
